FAERS Safety Report 8665844 (Version 3)
Quarter: 2013Q2

REPORT INFORMATION
  Report Type: Report from Study
  Country: JP (occurrence: JP)
  Receive Date: 20120716
  Receipt Date: 20130419
  Transmission Date: 20140414
  Serious: Yes (Hospitalization, Other)
  Sender: FDA-Public Use
  Company Number: JP-009507513-1207JPN001570

PATIENT
  Age: 61 Year
  Sex: Female
  Weight: 48 kg

DRUGS (8)
  1. PEGINTRON [Suspect]
     Indication: CHRONIC HEPATITIS C
     Dosage: 1.5 MICROGRAM PER KILOGRAM, QW
     Route: 058
     Dates: start: 20120510
  2. REBETOL [Suspect]
     Indication: CHRONIC HEPATITIS C
     Dosage: 600 MG, QD
     Route: 048
     Dates: start: 20120510, end: 20120520
  3. REBETOL [Suspect]
     Dosage: 400 MG, UNK
     Route: 048
     Dates: start: 20120521, end: 20120530
  4. REBETOL [Suspect]
     Dosage: 200 MG, UNK
     Route: 048
     Dates: start: 20120531
  5. TELAVIC [Suspect]
     Indication: CHRONIC HEPATITIS C
     Dosage: 1500 MG, QD
     Route: 048
     Dates: start: 20120510
  6. AMARYL [Concomitant]
     Indication: DIABETES MELLITUS
     Dosage: 1 DF, QD
     Route: 048
  7. LOXOPROFEN [Concomitant]
     Indication: PROPHYLAXIS
     Dosage: 1 DF, QD
     Route: 048
     Dates: start: 20120510, end: 20120621
  8. REBAMIPIDE [Concomitant]
     Indication: PROPHYLAXIS
     Dosage: 1 DF, QD
     Route: 048
     Dates: start: 20120510, end: 20120621

REACTIONS (2)
  - Rash [Recovering/Resolving]
  - Retinal haemorrhage [Unknown]
